FAERS Safety Report 8857724 (Version 2)
Quarter: 2013Q1

REPORT INFORMATION
  Report Type: Spontaneous
  Country: AU (occurrence: AU)
  Receive Date: 20121024
  Receipt Date: 20130325
  Transmission Date: 20140127
  Serious: Yes (Hospitalization, Other)
  Sender: FDA-Public Use
  Company Number: AU-B.I. PHARMACEUTICALS,INC./RIDGEFIELD-2012-AU-01766AU

PATIENT
  Age: 57 Year
  Sex: Male

DRUGS (12)
  1. PRADAXA [Suspect]
     Indication: ATRIAL FIBRILLATION
     Dosage: 300 MG
     Dates: end: 201210
  2. CARTIA [Concomitant]
     Dosage: 100 MG
  3. CRESTOR [Concomitant]
     Dosage: 40 MG
  4. DIABEX XR [Concomitant]
     Dosage: 2 G
  5. EZETROL [Concomitant]
  6. GLYADE MR [Concomitant]
     Route: 048
  7. METOPROLOL TARTRATE [Concomitant]
     Dosage: 50 MG
     Route: 048
  8. NEXIUM [Concomitant]
     Dosage: 20 MG
     Route: 048
  9. OSTELIN VITAMIN D [Concomitant]
     Dosage: 1000 U
  10. PANADEINE FORTE [Concomitant]
     Dosage: 2 ORAL QID/ PRN
     Route: 048
  11. RAMIPRIL [Concomitant]
     Dosage: 10 MG
  12. ZOLOFT [Concomitant]
     Dosage: 100 MG

REACTIONS (4)
  - Pancreatitis acute [Recovered/Resolved]
  - Abdominal pain upper [Recovered/Resolved]
  - Pain [Recovered/Resolved]
  - Nausea [Recovered/Resolved]
